FAERS Safety Report 8121390-2 (Version None)
Quarter: 2012Q1

REPORT INFORMATION
  Report Type: 
  Country: None (occurrence: None)
  Receive Date: 20120208
  Receipt Date: 20120202
  Transmission Date: 20120608
  Serious: No
  Sender: FDA-Public Use
  Company Number: US-PFIZER INC-2012029548

PATIENT
  Sex: Female
  Weight: 99.8 kg

DRUGS (2)
  1. PREMARIN [Suspect]
     Indication: OFF LABEL USE
     Dosage: UNK
     Route: 067
     Dates: start: 20111115, end: 20111201
  2. PREMARIN [Suspect]
     Indication: VULVOVAGINAL PAIN

REACTIONS (2)
  - VITAMIN D DEFICIENCY [None]
  - VITAMIN B12 DEFICIENCY [None]
